FAERS Safety Report 18755322 (Version 1)
Quarter: 2021Q1

REPORT INFORMATION
  Report Type: Spontaneous
  Country: US (occurrence: US)
  Receive Date: 20210116
  Receipt Date: 20210116
  Transmission Date: 20210419
  Serious: Yes (Other)
  Sender: FDA-Public Use
  Company Number: None

PATIENT
  Age: 67 Year
  Sex: Female
  Weight: 73.94 kg

DRUGS (11)
  1. SYNTHROID [Concomitant]
     Active Substance: LEVOTHYROXINE SODIUM
  2. ALBUTEROL INHALER [Concomitant]
     Active Substance: ALBUTEROL
  3. MAGNESIUM [Concomitant]
     Active Substance: MAGNESIUM
  4. ANORO ELLIPTA [Suspect]
     Active Substance: UMECLIDINIUM BROMIDE\VILANTEROL TRIFENATATE
  5. CALCIUM WITH VITAMIN D3 600 MG [Concomitant]
  6. TYLENOL [Concomitant]
     Active Substance: ACETAMINOPHEN
  7. LOSARTAN POTASSIUM. [Concomitant]
     Active Substance: LOSARTAN POTASSIUM
  8. ASPIRIN. [Concomitant]
     Active Substance: ASPIRIN
  9. HYDROCHLOROTHIAZIDE. [Concomitant]
     Active Substance: HYDROCHLOROTHIAZIDE
  10. VITAMIN B12 [Concomitant]
     Active Substance: CYANOCOBALAMIN
  11. POTASSIUM [Concomitant]
     Active Substance: POTASSIUM

REACTIONS (6)
  - Throat tightness [None]
  - Blood pressure increased [None]
  - Urticaria [None]
  - Panic attack [None]
  - Rash [None]
  - Heart rate irregular [None]

NARRATIVE: CASE EVENT DATE: 20210113
